FAERS Safety Report 18014373 (Version 1)
Quarter: 2020Q3

REPORT INFORMATION
  Report Type: Spontaneous
  Country: JP (occurrence: JP)
  Receive Date: 20200713
  Receipt Date: 20200713
  Transmission Date: 20201103
  Serious: Yes (Other)
  Sender: FDA-Public Use
  Company Number: JP-SHIRE-JP202022137AA

PATIENT
  Age: 5 Decade
  Sex: Male

DRUGS (1)
  1. AGRYLIN [Suspect]
     Active Substance: ANAGRELIDE HYDROCHLORIDE
     Indication: ESSENTIAL THROMBOCYTHAEMIA
     Dosage: 2 MILLIGRAM /DAY
     Route: 048

REACTIONS (1)
  - Cardiac dysfunction [Recovering/Resolving]

NARRATIVE: CASE EVENT DATE: 2020
